FAERS Safety Report 11599396 (Version 1)
Quarter: 2015Q3

REPORT INFORMATION
  Report Type: Spontaneous
  Country: US (occurrence: US)
  Receive Date: 20150916
  Receipt Date: 20150916
  Transmission Date: 20151125
  Serious: No
  Sender: FDA-Public Use
  Company Number: US-ELI_LILLY_AND_COMPANY-US200712000217

PATIENT
  Age: 74 Year
  Sex: Female

DRUGS (4)
  1. FORTEO [Suspect]
     Active Substance: TERIPARATIDE
     Indication: OSTEOPOROSIS
     Dates: start: 200709
  2. CALTRATE WITH VITAMIN D [Concomitant]
     Active Substance: CALCIUM CARBONATE\CHOLECALCIFEROL
     Dosage: 600 MG, 2/D
  3. VITAMIN B12 [Concomitant]
     Active Substance: CYANOCOBALAMIN
     Indication: ILEECTOMY
     Dosage: 1 ML, MONTHLY (1/M)
     Dates: start: 1982
  4. CENTRUM PLUS [Concomitant]
     Active Substance: VITAMINS
     Indication: OSTEOPOROSIS
     Dosage: 500 MG, DAILY (1/D)

REACTIONS (4)
  - Full blood count abnormal [Not Recovered/Not Resolved]
  - Thyroid function test abnormal [Not Recovered/Not Resolved]
  - Laboratory test abnormal [Not Recovered/Not Resolved]
  - Vitamin B12 increased [Not Recovered/Not Resolved]

NARRATIVE: CASE EVENT DATE: 200711
